FAERS Safety Report 6130593-8 (Version None)
Quarter: 2009Q1

REPORT INFORMATION
  Report Type: 
  Country: None (occurrence: None)
  Receive Date: 20090325
  Receipt Date: 20090316
  Transmission Date: 20090719
  Serious: Yes (Death, Other)
  Sender: FDA-Public Use
  Company Number: GB-RANBAXY-2009RR-22806

PATIENT
  Age: 70 Year
  Sex: Male

DRUGS (6)
  1. SIMVASTATIN [Suspect]
     Indication: HYPERCHOLESTEROLAEMIA
     Dosage: 40 MG, UNK
     Route: 048
     Dates: start: 20050101, end: 20081209
  2. SIMVASTATIN [Suspect]
     Indication: MYOCARDIAL ISCHAEMIA
  3. CLARITHROMYCIN [Concomitant]
     Indication: LOWER RESPIRATORY TRACT INFECTION
     Dosage: 500 MG, BID
     Route: 048
     Dates: start: 20081208, end: 20081209
  4. ERITHROMYCIN [Concomitant]
     Indication: LOWER RESPIRATORY TRACT INFECTION
     Dosage: 500 MG, BID
     Route: 048
     Dates: start: 20081204, end: 20081208
  5. SODIUM FUSIDATE [Concomitant]
     Indication: INTERVERTEBRAL DISCITIS
     Dosage: 500 MG, TID
     Route: 048
     Dates: start: 20081113, end: 20081216
  6. SODIUM FUSIDATE [Concomitant]
     Indication: MUSCLE ABSCESS

REACTIONS (4)
  - MUSCULAR WEAKNESS [None]
  - RENAL FAILURE ACUTE [None]
  - RESPIRATORY DISORDER [None]
  - RHABDOMYOLYSIS [None]
